FAERS Safety Report 5051973-8 (Version None)
Quarter: 2006Q3

REPORT INFORMATION
  Report Type: 
  Country: None (occurrence: None)
  Receive Date: 20060710
  Receipt Date: 20060627
  Transmission Date: 20061208
  Serious: Yes (Hospitalization)
  Sender: FDA-Public Use
  Company Number: 2006080227

PATIENT
  Age: 89 Year
  Sex: Female

DRUGS (23)
  1. ALDACTONE [Suspect]
     Indication: DRUG USE FOR UNKNOWN INDICATION
  2. CEFAZOLIN [Suspect]
     Indication: DRUG USE FOR UNKNOWN INDICATION
     Dosage: PARENTERAL
     Route: 051
  3. ADVAIR DISKUS 100/50 [Suspect]
     Indication: DRUG USE FOR UNKNOWN INDICATION
     Dosage: INHALATION
     Route: 055
  4. COREG [Suspect]
     Indication: DRUG USE FOR UNKNOWN INDICATION
     Dosage: ORAL
     Route: 048
  5. ACETAMINOPHEN [Suspect]
     Indication: DRUG USE FOR UNKNOWN INDICATION
  6. REMERON [Suspect]
     Indication: DEPRESSION
     Dosage: 15 MG, ORAL
     Route: 048
     Dates: end: 20050301
  7. ULTRAM [Suspect]
     Indication: DRUG USE FOR UNKNOWN INDICATION
  8. DOCUSATE SODIUM (DOCUSATE SODIUM) [Suspect]
     Indication: DRUG USE FOR UNKNOWN INDICATION
  9. ASPIRIN [Suspect]
     Indication: DRUG USE FOR UNKNOWN INDICATION
  10. PEPCID [Suspect]
     Indication: DRUG USE FOR UNKNOWN INDICATION
  11. LOVENOX [Suspect]
     Indication: DRUG USE FOR UNKNOWN INDICATION
  12. PREDNISONE TAB [Suspect]
     Indication: DRUG USE FOR UNKNOWN INDICATION
  13. LASIX [Suspect]
     Indication: DRUG USE FOR UNKNOWN INDICATION
  14. KEFLEX [Suspect]
     Indication: DRUG USE FOR UNKNOWN INDICATION
  15. SLOW-MAG (MAGNESIUM CHLORIDE ANHYDROUS) [Suspect]
     Indication: DRUG USE FOR UNKNOWN INDICATION
  16. PRO-BANTHINE (PROPANTHELINE BROMIDE) [Suspect]
     Indication: DRUG USE FOR UNKNOWN INDICATION
  17. BEXTRA [Suspect]
     Indication: DRUG USE FOR UNKNOWN INDICATION
  18. COZAAR [Suspect]
     Indication: DRUG USE FOR UNKNOWN INDICATION
  19. NORVASC [Suspect]
     Indication: DRUG USE FOR UNKNOWN INDICATION
  20. DARVOCET-N 100 [Suspect]
     Indication: DRUG USE FOR UNKNOWN INDICATION
  21. DUONEB [Suspect]
     Indication: DRUG USE FOR UNKNOWN INDICATION
  22. EFFEXOR XR [Suspect]
     Indication: DRUG USE FOR UNKNOWN INDICATION
     Dosage: 225 MG
     Dates: end: 20050301
  23. TRAZODONE HCL [Suspect]
     Indication: DRUG USE FOR UNKNOWN INDICATION

REACTIONS (3)
  - HIP FRACTURE [None]
  - HYPONATRAEMIA [None]
  - POSTOPERATIVE INFECTION [None]
